FAERS Safety Report 8977759 (Version 2)
Quarter: 2013Q1

REPORT INFORMATION
  Report Type: Spontaneous
  Country: BE (occurrence: BE)
  Receive Date: 20121220
  Receipt Date: 20130218
  Transmission Date: 20140127
  Serious: Yes (Hospitalization, Other)
  Sender: FDA-Public Use
  Company Number: BE-009507513-1212BEL001004

PATIENT
  Age: 10 Year
  Sex: Female
  Weight: 53 kg

DRUGS (1)
  1. IMPLANON NXT [Suspect]
     Dosage: 1 DF, UNK
     Route: 059
     Dates: start: 20120907

REACTIONS (2)
  - Abortion induced [Recovered/Resolved]
  - Unintended pregnancy [Recovered/Resolved]
